FAERS Safety Report 6658117-7 (Version None)
Quarter: 2010Q1

REPORT INFORMATION
  Report Type: 
  Country: None (occurrence: None)
  Receive Date: 20100330
  Receipt Date: 20100325
  Transmission Date: 20100710
  Serious: Yes (Other)
  Sender: FDA-Public Use
  Company Number: US-ELI_LILLY_AND_COMPANY-US201003007252

PATIENT
  Sex: Male

DRUGS (3)
  1. HUMALOG [Suspect]
     Indication: DIABETES MELLITUS
     Dosage: UNK, AS NEEDED
     Dates: start: 20000101
  2. LANTUS [Concomitant]
     Dosage: 40 U, UNK
  3. NOVOLIN [Concomitant]
     Dosage: UNK, EACH EVENING

REACTIONS (1)
  - DEAFNESS [None]
